FAERS Safety Report 7764727-6 (Version None)
Quarter: 2011Q3

REPORT INFORMATION
  Report Type: 
  Country: None (occurrence: None)
  Receive Date: 20110920
  Receipt Date: 20110920
  Transmission Date: 20111222
  Serious: No
  Sender: FDA-Public Use
  Company Number: None

PATIENT
  Age: 65 Year
  Sex: Male
  Weight: 102 kg

DRUGS (1)
  1. FEBUXOSTAT [Suspect]
     Dates: start: 20110318

REACTIONS (3)
  - DYSPNOEA [None]
  - LIP SWELLING [None]
  - RASH GENERALISED [None]
